FAERS Safety Report 5239108-X (Version None)
Quarter: 2007Q1

REPORT INFORMATION
  Report Type: 
  Country: None (occurrence: None)
  Receive Date: 20061208
  Receipt Date: 20050613
  Transmission Date: 20070707
  Serious: Yes (Other)
  Sender: FDA-Public Use
  Company Number: 2005UW07148

PATIENT
  Age: 82 Year
  Sex: Female

DRUGS (1)
  1. CRESTOR [Suspect]
     Indication: BLOOD CHOLESTEROL INCREASED
     Dosage: 5 MG HS PO
     Route: 048
     Dates: start: 20050323, end: 20050406

REACTIONS (6)
  - BONE PAIN [None]
  - CONSTIPATION [None]
  - EPISTAXIS [None]
  - FLATULENCE [None]
  - MYALGIA [None]
  - SINUSITIS [None]
